FAERS Safety Report 8523795 (Version 2)
Quarter: 2013Q2

REPORT INFORMATION
  Report Type: Spontaneous
  Country: CA (occurrence: CA)
  Receive Date: 20120420
  Receipt Date: 20130604
  Transmission Date: 20140414
  Serious: Yes (Other)
  Sender: FDA-Public Use
  Company Number: CA-JNJFOC-20120405731

PATIENT
  Age: 31 Year
  Sex: Male
  Weight: 57 kg

DRUGS (3)
  1. REMICADE [Suspect]
     Indication: ANKYLOSING SPONDYLITIS
     Route: 042
     Dates: start: 20100326
  2. REMICADE [Suspect]
     Indication: ANKYLOSING SPONDYLITIS
     Route: 042
     Dates: start: 20120411, end: 20120411
  3. TYLENOL [Concomitant]
     Indication: PYREXIA
     Route: 065

REACTIONS (4)
  - Tremor [Unknown]
  - Infusion related reaction [Unknown]
  - Pyrexia [Recovered/Resolved]
  - Chills [Recovered/Resolved]
